FAERS Safety Report 5958452-1 (Version None)
Quarter: 2008Q4

REPORT INFORMATION
  Report Type: 
  Country: None (occurrence: None)
  Receive Date: 20081119
  Receipt Date: 20081112
  Transmission Date: 20090506
  Serious: Yes (Hospitalization)
  Sender: FDA-Public Use
  Company Number: US-BAXTER-2008BH012365

PATIENT
  Age: 65 None
  Sex: Female

DRUGS (2)
  1. GAMMAGARD LIQUID [Suspect]
     Indication: PRIMARY IMMUNODEFICIENCY SYNDROME
     Route: 042
     Dates: start: 20040101, end: 20080630
  2. GAMMAGARD LIQUID [Suspect]
     Route: 042
     Dates: start: 20081110

REACTIONS (1)
  - PULMONARY EMBOLISM [None]
